FAERS Safety Report 20881935 (Version 1)
Quarter: 2022Q2

REPORT INFORMATION
  Report Type: Report from Study
  Country: US (occurrence: US)
  Receive Date: 20220527
  Receipt Date: 20220527
  Transmission Date: 20220721
  Serious: No
  Sender: FDA-Public Use
  Company Number: US-CELGENE-USA-20220108278

PATIENT
  Age: 85 Year
  Sex: Female
  Weight: 62.142 kg

DRUGS (3)
  1. REVLIMID [Suspect]
     Active Substance: LENALIDOMIDE
     Indication: Non-Hodgkin^s lymphoma
     Dosage: 15 MILLIGRAM
     Route: 048
     Dates: start: 20210604
  2. REVLIMID [Suspect]
     Active Substance: LENALIDOMIDE
     Indication: Breast cancer
     Dosage: 2.5 MILLIGRAM
     Route: 048
     Dates: start: 202111
  3. REVLIMID [Suspect]
     Active Substance: LENALIDOMIDE
     Dates: start: 20210604

REACTIONS (2)
  - Blood pressure increased [Unknown]
  - Urinary tract infection [Unknown]
